FAERS Safety Report 6293546-5 (Version None)
Quarter: 2009Q3

REPORT INFORMATION
  Report Type: 
  Country: None (occurrence: None)
  Receive Date: 20090803
  Receipt Date: 20090722
  Transmission Date: 20100115
  Serious: Yes (Other)
  Sender: FDA-Public Use
  Company Number: JP-BRISTOL-MYERS SQUIBB COMPANY-14714679

PATIENT
  Age: 49 Year
  Sex: Female

DRUGS (2)
  1. PARAPLATIN [Suspect]
     Indication: LUNG ADENOCARCINOMA STAGE IV
     Route: 041
  2. DOCETAXEL [Suspect]
     Indication: LUNG ADENOCARCINOMA STAGE IV
     Dosage: FORM = INJ
     Route: 042

REACTIONS (1)
  - DEEP VEIN THROMBOSIS [None]
